FAERS Safety Report 20517981 (Version 1)
Quarter: 2022Q1

REPORT INFORMATION
  Report Type: Spontaneous
  Country: US (occurrence: None)
  Receive Date: 20220224
  Receipt Date: 20220224
  Transmission Date: 20220423
  Serious: Yes (Life-Threatening, Hospitalization)
  Sender: FDA-Public Use
  Company Number: None

PATIENT
  Age: 64 Year
  Sex: Male
  Weight: 135 kg

DRUGS (1)
  1. CLOPIDOGREL BISULFATE [Suspect]
     Active Substance: CLOPIDOGREL BISULFATE
     Indication: Stent placement
     Dosage: 75 MG EVERY DAY PO?
     Route: 048
     Dates: start: 20180808, end: 20210625

REACTIONS (5)
  - Chest pain [None]
  - Gastric haemorrhage [None]
  - Large intestinal ulcer [None]
  - Diverticulum [None]
  - Haemorrhoids [None]

NARRATIVE: CASE EVENT DATE: 20210623
